FAERS Safety Report 5891666-8 (Version None)
Quarter: 2008Q3

REPORT INFORMATION
  Report Type: 
  Country: None (occurrence: None)
  Receive Date: 20080922
  Receipt Date: 20080910
  Transmission Date: 20090109
  Serious: Yes (Life-Threatening, Other)
  Sender: FDA-Public Use
  Company Number: US-PFIZER INC-2008051837

PATIENT
  Sex: Female
  Weight: 117.9 kg

DRUGS (53)
  1. LYRICA [Suspect]
     Indication: FIBROMYALGIA
     Route: 048
     Dates: start: 20070809, end: 20070911
  2. MONTELUKAST SODIUM [Concomitant]
  3. DURAGESIC-100 [Concomitant]
  4. NEXIUM [Concomitant]
  5. FOLIC ACID [Concomitant]
  6. CLARINEX [Concomitant]
  7. CELEBREX [Concomitant]
  8. GLUCOSAMINE SULFATE [Concomitant]
  9. CYMBALTA [Concomitant]
  10. OCEAN [Concomitant]
  11. GENTEAL [Concomitant]
  12. ALL OTHER THERAPEUTIC PRODUCTS [Concomitant]
  13. EFFEXOR XR [Concomitant]
     Route: 048
  14. MIDRIN [Concomitant]
  15. LOMOTIL [Concomitant]
  16. ATIVAN [Concomitant]
  17. NORFLEX [Concomitant]
  18. ASPIRIN [Concomitant]
  19. TYLENOL (CAPLET) [Concomitant]
     Route: 048
  20. COMPAZINE [Concomitant]
  21. REFRESH TEARS [Concomitant]
  22. EPIPEN [Concomitant]
  23. VITAMIN B-12 [Concomitant]
  24. PATANOL [Concomitant]
  25. CITRACAL [Concomitant]
  26. CYCLOSPORINE [Concomitant]
     Route: 047
  27. THERA TEARS [Concomitant]
  28. PROTEIN SUPPLEMENTS [Concomitant]
  29. PHOSPHATIDYL SERINE [Concomitant]
  30. GINKGO BILOBA [Concomitant]
  31. GINGER [Concomitant]
  32. HAWTHORN [Concomitant]
  33. VITAMIN B6 [Concomitant]
  34. MILK THISTLE [Concomitant]
  35. TEA, GREEN [Concomitant]
  36. CRANBERRY [Concomitant]
  37. COD-LIVER OIL [Concomitant]
  38. COENZYME Q10 [Concomitant]
  39. PYCNOGENOL [Concomitant]
  40. GARLIC [Concomitant]
  41. VALERIAN ROOT [Concomitant]
  42. RED CLOVER [Concomitant]
  43. ALTHAEA OFFICINALIS ROOT [Concomitant]
  44. ACIDOPHILUS [Concomitant]
  45. ASCORBIC ACID [Concomitant]
  46. PHAZYME [Concomitant]
  47. CITRUCEL [Concomitant]
  48. SODIUM CHLORIDE [Concomitant]
     Route: 047
  49. GOLD BOND [Concomitant]
  50. CETAPHIL [Concomitant]
  51. SOAP ENEMA [Concomitant]
  52. HEADON [Concomitant]
  53. KAOPECTATE [Concomitant]

REACTIONS (7)
  - ANAPHYLACTIC SHOCK [None]
  - DYSPNOEA [None]
  - LIP SWELLING [None]
  - MUSCULOSKELETAL CHEST PAIN [None]
  - NASAL OEDEMA [None]
  - PHARYNGEAL OEDEMA [None]
  - SWOLLEN TONGUE [None]
